FAERS Safety Report 12069718 (Version 1)
Quarter: 2016Q1

REPORT INFORMATION
  Report Type: Spontaneous
  Country: US (occurrence: US)
  Receive Date: 20160211
  Receipt Date: 20160211
  Transmission Date: 20160526
  Serious: No
  Sender: FDA-Public Use
  Company Number: US-PFIZER INC-2016075518

PATIENT
  Age: 54 Year
  Sex: Male
  Weight: 151.5 kg

DRUGS (1)
  1. GABAPENTIN. [Suspect]
     Active Substance: GABAPENTIN

REACTIONS (4)
  - Abnormal dreams [Unknown]
  - Thinking abnormal [Unknown]
  - Drug ineffective [Unknown]
  - Feeling abnormal [Unknown]
